FAERS Safety Report 4469093-X (Version None)
Quarter: 2004Q4

REPORT INFORMATION
  Report Type: 
  Country: None (occurrence: None)
  Receive Date: 20041008
  Receipt Date: 20040908
  Transmission Date: 20050328
  Serious: Yes (Other)
  Sender: FDA-Public Use
  Company Number: 200419068GDDC

PATIENT
  Age: 54 Year
  Sex: Male

DRUGS (7)
  1. ARAVA [Suspect]
     Indication: RHEUMATOID ARTHRITIS
     Route: 048
     Dates: start: 20040706, end: 20040810
  2. METHOTREXATE [Concomitant]
     Indication: RHEUMATOID ARTHRITIS
     Route: 048
     Dates: start: 20040114, end: 20040810
  3. PREDNISONE [Concomitant]
     Indication: RHEUMATOID ARTHRITIS
     Route: 048
     Dates: start: 20040114, end: 20040810
  4. CELECOXIB [Concomitant]
     Dosage: DOSE: UNK
  5. ZANEDIP [Concomitant]
  6. SALAZOPYRIN [Concomitant]
     Indication: RHEUMATOID ARTHRITIS
     Route: 048
     Dates: start: 20030901, end: 20040810
  7. FOLATE [Concomitant]
     Indication: RHEUMATOID ARTHRITIS
     Dosage: DOSE: 3X5 AMPS
     Route: 048
     Dates: start: 20040114, end: 20040810

REACTIONS (5)
  - ALANINE AMINOTRANSFERASE INCREASED [None]
  - ASPARTATE AMINOTRANSFERASE INCREASED [None]
  - BLOOD ALKALINE PHOSPHATASE INCREASED [None]
  - BLOOD BILIRUBIN INCREASED [None]
  - FEELING ABNORMAL [None]
